FAERS Safety Report 9523646 (Version 1)
Quarter: 2013Q3

REPORT INFORMATION
  Report Type: Spontaneous
  Country: FR (occurrence: FR)
  Receive Date: 20130913
  Receipt Date: 20130913
  Transmission Date: 20140515
  Serious: Yes (Hospitalization)
  Sender: FDA-Public Use
  Company Number: FR-BAYER-2013-106981

PATIENT
  Age: 92 Year
  Sex: Female

DRUGS (10)
  1. CIFLOX [Suspect]
     Indication: URINARY TRACT INFECTION
     Dosage: UNK
     Route: 048
     Dates: start: 20121204, end: 20121207
  2. CIFLOX [Suspect]
     Indication: BRONCHITIS
  3. COVERSYL [Suspect]
     Indication: URINARY TRACT INFECTION
     Dosage: 2 MG, QD
     Route: 048
     Dates: start: 20121129, end: 20121207
  4. FURADANTINE [Suspect]
     Indication: URINARY TRACT INFECTION
     Dosage: UNK
     Route: 048
     Dates: start: 20121129, end: 20121204
  5. LASILIX [Concomitant]
     Dosage: 20 MG, QD
     Route: 048
  6. PLAVIX [Concomitant]
     Dosage: 75 MG, QD
     Route: 048
  7. INEXIUM [Concomitant]
     Dosage: 20 MG, QD
     Route: 048
  8. CALCIDIA [Concomitant]
     Dosage: 1.5 G, QD
     Route: 048
  9. ATARAX [Concomitant]
     Dosage: 25 MG, QD
     Route: 048
  10. UVEDOSE [Concomitant]
     Dosage: 1 DF, Q2WK
     Route: 048

REACTIONS (1)
  - Drug reaction with eosinophilia and systemic symptoms [Recovered/Resolved]
